FAERS Safety Report 23600809 (Version 1)
Quarter: 2024Q1

REPORT INFORMATION
  Report Type: Spontaneous
  Country: US (occurrence: None)
  Receive Date: 20240305
  Receipt Date: 20240305
  Transmission Date: 20240410
  Serious: Yes (Life-Threatening, Hospitalization, Disabling)
  Sender: FDA-Public Use
  Company Number: None

PATIENT
  Age: 65 Year
  Sex: Female
  Weight: 89.1 kg

DRUGS (8)
  1. KEYTRUDA [Suspect]
     Active Substance: PEMBROLIZUMAB
     Indication: Triple negative breast cancer
     Dosage: OTHER FREQUENCY : EVERY THREE WEEKS;?
     Route: 042
     Dates: start: 20230726, end: 20240117
  2. GABAPENTIN [Concomitant]
     Active Substance: GABAPENTIN
  3. Cort-F (steroids) [Concomitant]
  4. PANTOPRAZOLE [Concomitant]
     Active Substance: PANTOPRAZOLE
  5. ELIQUIS [Concomitant]
     Active Substance: APIXABAN
  6. VITAMIN D [Concomitant]
     Active Substance: VITAMIN D NOS
  7. Calcium/Magnesium for bones supplement [Concomitant]
  8. VITAMIN B COMPLEX [Concomitant]
     Active Substance: CYANOCOBALAMIN\DEXPANTHENOL\NIACINAMIDE\PYRIDOXINE HYDROCHLORIDE\RIBOFLAVIN 5^-PHOSPHATE SODIUM\THIA

REACTIONS (3)
  - Adrenal insufficiency [None]
  - Adrenocortical insufficiency acute [None]
  - Adverse drug reaction [None]

NARRATIVE: CASE EVENT DATE: 20240117
